FAERS Safety Report 4446912-4 (Version None)
Quarter: 2004Q3

REPORT INFORMATION
  Report Type: 
  Country: None (occurrence: None)
  Receive Date: 20040908
  Receipt Date: 20040820
  Transmission Date: 20050211
  Serious: Yes (Hospitalization)
  Sender: FDA-Public Use
  Company Number: DSA_24864_2004

PATIENT
  Sex: Male

DRUGS (17)
  1. TAVOR [Suspect]
     Dates: start: 20040321
  2. CLOMIPRAMINE HCL [Suspect]
     Dates: start: 20040321
  3. NOVAMINSULFON-RATIOPHARM [Suspect]
     Dates: end: 20040321
  4. ROFECOXIB [Suspect]
     Dates: start: 20040321
  5. UNSPECIFIED ACE INHIBITOR [Concomitant]
  6. UNSPECIFIED BETA BLOCKER [Concomitant]
  7. PIRITRAMIDE [Concomitant]
  8. TRAMADOL HCL [Concomitant]
  9. RANITIDINE [Concomitant]
  10. CERTOPARIN SODIUM [Concomitant]
  11. INSULIN [Concomitant]
  12. FUROSEMIDE [Concomitant]
  13. PIPERACILLIN [Concomitant]
  14. SULBACTAM [Concomitant]
  15. GENTAMYCIN SULFATE [Concomitant]
  16. SUFENTANIL [Concomitant]
  17. MIDAZOLAM [Concomitant]

REACTIONS (5)
  - ALANINE AMINOTRANSFERASE INCREASED [None]
  - BLOOD ALKALINE PHOSPHATASE INCREASED [None]
  - GAMMA-GLUTAMYLTRANSFERASE INCREASED [None]
  - IDIOPATHIC THROMBOCYTOPENIC PURPURA [None]
  - INFECTION [None]
